FAERS Safety Report 7384405-5 (Version None)
Quarter: 2011Q1

REPORT INFORMATION
  Report Type: 
  Country: None (occurrence: None)
  Receive Date: 20110330
  Receipt Date: 20110322
  Transmission Date: 20110831
  Serious: Yes (Other)
  Sender: FDA-Public Use
  Company Number: US-AMGEN-USASP2011015615

PATIENT

DRUGS (2)
  1. NEULASTA [Suspect]
     Indication: CHEMOTHERAPY
     Dates: start: 20110301
  2. CHEMOTHERAPEUTICS NOS [Concomitant]

REACTIONS (1)
  - NEUTROPHIL COUNT DECREASED [None]
